FAERS Safety Report 25211086 (Version 1)
Quarter: 2025Q2

REPORT INFORMATION
  Report Type: Spontaneous
  Country: US (occurrence: None)
  Receive Date: 20250417
  Receipt Date: 20250417
  Transmission Date: 20250717
  Serious: Yes (Other)
  Sender: FDA-CTU
  Company Number: None

PATIENT
  Age: 30 Year
  Sex: Female
  Weight: 63.96 kg

DRUGS (1)
  1. LISDEXAMFETAMINE [Suspect]
     Active Substance: LISDEXAMFETAMINE
     Indication: Attention deficit hyperactivity disorder
     Dates: start: 20241230

REACTIONS (5)
  - Fatigue [None]
  - Nausea [None]
  - Anxiety [None]
  - Gastrooesophageal reflux disease [None]
  - Agitation [None]

NARRATIVE: CASE EVENT DATE: 20250127
